FAERS Safety Report 7469942-7 (Version None)
Quarter: 2011Q2

REPORT INFORMATION
  Report Type: 
  Country: None (occurrence: None)
  Receive Date: 20110510
  Receipt Date: 20110505
  Transmission Date: 20111010
  Serious: Yes (Life-Threatening, Hospitalization, Other)
  Sender: FDA-Public Use
  Company Number: CA-PFIZER INC-2011084570

PATIENT
  Age: 63 Year
  Sex: Female

DRUGS (8)
  1. FUROSEMIDE [Concomitant]
     Dosage: UNK
     Route: 048
  2. HUMULIN N [Concomitant]
     Dosage: 100 IU/ML, UNK
     Route: 058
  3. VARENICLINE TARTRATE [Suspect]
     Dosage: 0.5 MG, 2X/DAY
     Route: 048
  4. RAMIPRIL [Concomitant]
     Dosage: UNK
     Route: 048
  5. NPH INSULIN [Concomitant]
     Dosage: UNK
  6. VARENICLINE TARTRATE [Suspect]
     Dosage: 0.5 MG, 1X/DAY
     Route: 048
  7. VARENICLINE TARTRATE [Suspect]
     Dosage: 1 MG, 2X/DAY
     Route: 048
  8. HUMALOG PEN [Concomitant]
     Dosage: UNK
     Route: 058

REACTIONS (9)
  - LOSS OF CONSCIOUSNESS [None]
  - RENAL IMPAIRMENT [None]
  - TRANSFUSION [None]
  - BLOOD PRESSURE INCREASED [None]
  - VOMITING [None]
  - INFLUENZA LIKE ILLNESS [None]
  - BLOOD GLUCOSE INCREASED [None]
  - NAUSEA [None]
  - DREAMY STATE [None]
